FAERS Safety Report 21156822 (Version 1)
Quarter: 2022Q3

REPORT INFORMATION
  Report Type: Spontaneous
  Country: US (occurrence: US)
  Receive Date: 20220801
  Receipt Date: 20220801
  Transmission Date: 20221026
  Serious: Yes (Life-Threatening, Other)
  Sender: FDA-Public Use
  Company Number: US-PFIZER INC-PV202200032566

PATIENT
  Age: 11 Month
  Sex: Male

DRUGS (6)
  1. VINCRISTINE SULFATE [Suspect]
     Active Substance: VINCRISTINE SULFATE
     Indication: Medulloblastoma
     Dosage: UNK, CYCLIC (THREE CYCLES)
  2. CISPLATIN [Concomitant]
     Active Substance: CISPLATIN
     Indication: Medulloblastoma
     Dosage: UNK, CYCLIC (THREE CYCLE)
  3. ETOPOSIDE [Concomitant]
     Active Substance: ETOPOSIDE
     Indication: Medulloblastoma
     Dosage: UNK UNK, CYCLIC (THREE CYCLES)
  4. CYCLOPHOSPHAMIDE [Concomitant]
     Active Substance: CYCLOPHOSPHAMIDE
     Indication: Medulloblastoma
     Dosage: UNK UNK, CYCLIC (THREE CYCLES)
  5. THIOTEPA [Concomitant]
     Active Substance: THIOTEPA
     Indication: Medulloblastoma
     Dosage: UNK UNK, CYCLIC (THREE CYCLES)
  6. CARBOPLATIN [Concomitant]
     Active Substance: CARBOPLATIN
     Indication: Medulloblastoma
     Dosage: UNK UNK, CYCLICN (THREE CYCLES)

REACTIONS (4)
  - Vocal cord paralysis [Unknown]
  - Myelosuppression [Unknown]
  - Mucosal inflammation [Unknown]
  - Dysphagia [Unknown]
